FAERS Safety Report 22806082 (Version 4)
Quarter: 2024Q1

REPORT INFORMATION
  Report Type: Spontaneous
  Country: US (occurrence: US)
  Receive Date: 20230809
  Receipt Date: 20240313
  Transmission Date: 20240410
  Serious: No
  Sender: FDA-Public Use
  Company Number: US-Calliditas-2023CAL00963

PATIENT
  Age: 67 Year
  Sex: Male
  Weight: 85.28 kg

DRUGS (1)
  1. TARPEYO [Suspect]
     Active Substance: BUDESONIDE
     Indication: IgA nephropathy
     Dosage: 16MG (4MG CAPSULES) ONCE DAILY
     Route: 048
     Dates: start: 20230504

REACTIONS (8)
  - Insomnia [Not Recovered/Not Resolved]
  - Condition aggravated [Not Recovered/Not Resolved]
  - Weight increased [Not Recovered/Not Resolved]
  - Hunger [Not Recovered/Not Resolved]
  - Joint swelling [Not Recovered/Not Resolved]
  - Blood glucose increased [Unknown]
  - Irritability [Unknown]
  - Hypertension [Unknown]

NARRATIVE: CASE EVENT DATE: 20230501
